FAERS Safety Report 24030450 (Version 1)
Quarter: 2024Q2

REPORT INFORMATION
  Report Type: Spontaneous
  Country: US (occurrence: US)
  Receive Date: 20240628
  Receipt Date: 20240628
  Transmission Date: 20240715
  Serious: No
  Sender: FDA-Public Use
  Company Number: US-NKFPHARMA-2023MPSPO00075

PATIENT

DRUGS (3)
  1. HEPARIN SODIUM [Suspect]
     Active Substance: HEPARIN SODIUM
     Indication: Product used for unknown indication
     Route: 065
     Dates: start: 20230411
  2. HEPARIN SODIUM [Suspect]
     Active Substance: HEPARIN SODIUM
     Dosage: 30,000 UNITS, GAVE AN ADDITIONAL 20,000 IU
     Route: 065
     Dates: start: 20230411
  3. HEPARIN SODIUM [Suspect]
     Active Substance: HEPARIN SODIUM
     Dosage: ADDITIONAL 30,000 IU DOSE, EXTRA RECEIVED 30,000 IU
     Route: 065
     Dates: start: 20230411

REACTIONS (1)
  - Therapeutic product effect incomplete [Unknown]
